FAERS Safety Report 6168615-0 (Version None)
Quarter: 2009Q2

REPORT INFORMATION
  Report Type: 
  Country: None (occurrence: None)
  Receive Date: 20090427
  Receipt Date: 20090423
  Transmission Date: 20091009
  Serious: Yes (Life-Threatening, Other)
  Sender: FDA-Public Use
  Company Number: GB-ASTRAZENECA-2009GB00534

PATIENT
  Age: 641 Month
  Sex: Female

DRUGS (4)
  1. SEROQUEL XR [Suspect]
     Indication: AFFECTIVE DISORDER
     Dosage: DAY 1
     Route: 048
     Dates: start: 20090201
  2. SEROQUEL XR [Suspect]
     Dosage: DAY 2 ONWARDS
     Route: 048
     Dates: start: 20090215, end: 20090220
  3. CITALOPRAM HYDROBROMIDE [Concomitant]
  4. DEPIXOL [Concomitant]
     Dosage: DEPOT
     Route: 030
     Dates: start: 20050101

REACTIONS (4)
  - AGITATION [None]
  - ANXIETY [None]
  - HYPOTENSION [None]
  - TACHYCARDIA [None]
